FAERS Safety Report 19849503 (Version 2)
Quarter: 2021Q4

REPORT INFORMATION
  Report Type: Report from Study
  Country: US (occurrence: US)
  Receive Date: 20210918
  Receipt Date: 20211210
  Transmission Date: 20220304
  Serious: No
  Sender: FDA-Public Use
  Company Number: US-NOVARTISTESTPH-NVSC2021US212057

PATIENT
  Sex: Male

DRUGS (1)
  1. COSENTYX [Suspect]
     Active Substance: SECUKINUMAB
     Indication: Psoriasis
     Route: 065

REACTIONS (2)
  - Psoriasis [Unknown]
  - Product dose omission issue [Unknown]
